FAERS Safety Report 20565601 (Version 4)
Quarter: 2022Q2

REPORT INFORMATION
  Report Type: Spontaneous
  Country: MX (occurrence: MX)
  Receive Date: 20220308
  Receipt Date: 20220624
  Transmission Date: 20220721
  Serious: Yes (Other)
  Sender: FDA-Public Use
  Company Number: MX-VIIV HEALTHCARE ULC-MX2022AMR040755

PATIENT

DRUGS (3)
  1. TIVICAY [Suspect]
     Active Substance: DOLUTEGRAVIR SODIUM
     Indication: HIV infection
     Dosage: 4 DF, 10 MG
     Route: 048
     Dates: start: 20211031, end: 20211104
  2. TIVICAY [Suspect]
     Active Substance: DOLUTEGRAVIR SODIUM
     Dosage: 20 MG
     Dates: start: 20220315
  3. KALETRA [Concomitant]
     Active Substance: LOPINAVIR\RITONAVIR
     Indication: Product used for unknown indication
     Dosage: UNK, SUSPENSION

REACTIONS (8)
  - Autism spectrum disorder [Unknown]
  - Toxicity to various agents [Unknown]
  - Abnormal behaviour [Unknown]
  - Dyskinesia [Unknown]
  - Urinary incontinence [Unknown]
  - Overdose [Unknown]
  - Off label use [Unknown]
  - Wrong technique in product usage process [Unknown]

NARRATIVE: CASE EVENT DATE: 20211001
